FAERS Safety Report 16715516 (Version 2)
Quarter: 2019Q4

REPORT INFORMATION
  Report Type: Spontaneous
  Country: JP (occurrence: JP)
  Receive Date: 20190819
  Receipt Date: 20191008
  Transmission Date: 20200122
  Serious: Yes (Hospitalization)
  Sender: FDA-Public Use
  Company Number: JP-NOVOPROD-678043

PATIENT
  Age: 26 Year
  Sex: Female
  Weight: 59.6 kg

DRUGS (8)
  1. CALONAL [Concomitant]
     Active Substance: ACETAMINOPHEN
     Indication: PYREXIA
     Dosage: UNK
     Route: 065
     Dates: start: 20190803
  2. VICTOZA [Suspect]
     Active Substance: LIRAGLUTIDE
     Indication: WEIGHT CONTROL
     Dosage: 0.3 MG, QD
     Route: 058
     Dates: start: 20190727
  3. TRANSAMIN [Suspect]
     Active Substance: TRANEXAMIC ACID
     Indication: TONSILLAR HYPERTROPHY
     Dosage: UNK
     Route: 065
     Dates: start: 20190803
  4. RANTUDIL FORTE [Concomitant]
     Indication: TONSILLAR HYPERTROPHY
     Dosage: UNK
     Route: 065
     Dates: start: 20190803
  5. MEIACT [Suspect]
     Active Substance: CEFDITOREN PIVOXIL
     Indication: TONSILLAR HYPERTROPHY
     Dosage: 100 MG
     Route: 048
     Dates: start: 20190803
  6. VICTOZA [Suspect]
     Active Substance: LIRAGLUTIDE
     Dosage: 0.6 MG, QD
     Route: 058
     Dates: start: 20190804, end: 20190804
  7. LANSOPRAZOLE. [Suspect]
     Active Substance: LANSOPRAZOLE
     Indication: PRODUCT USED FOR UNKNOWN INDICATION
     Dosage: UNK
     Route: 048
     Dates: start: 20190803
  8. ALLEGRA [Suspect]
     Active Substance: FEXOFENADINE HYDROCHLORIDE
     Indication: PRODUCT USED FOR UNKNOWN INDICATION
     Dosage: UNK
     Route: 048
     Dates: start: 20190803

REACTIONS (2)
  - Off label use [Unknown]
  - Urticaria [Recovering/Resolving]

NARRATIVE: CASE EVENT DATE: 20190804
